FAERS Safety Report 7417671-8 (Version None)
Quarter: 2011Q2

REPORT INFORMATION
  Report Type: 
  Country: None (occurrence: None)
  Receive Date: 20110415
  Receipt Date: 20110407
  Transmission Date: 20111010
  Serious: Yes (Hospitalization)
  Sender: FDA-Public Use
  Company Number: PHHO2010US12110

PATIENT
  Sex: Male
  Weight: 123.36 kg

DRUGS (40)
  1. ENALAPRIL MALEATE [Suspect]
     Dosage: CODE NOT BROKEN
     Route: 048
     Dates: start: 20100518, end: 20100723
  2. ASPIRIN [Concomitant]
  3. BLINDED NO TREATMENT RECEIVED [Suspect]
     Dosage: NO TREATMENT
     Dates: start: 20100724, end: 20100728
  4. BLINDED NO TREATMENT RECEIVED [Suspect]
     Dosage: CODE NOT BROKEN
     Route: 048
     Dates: start: 20100729
  5. ENALAPRIL MALEATE [Suspect]
     Indication: CARDIAC FAILURE
  6. TORSEMIDE [Concomitant]
  7. SPIRONOLACTONE [Concomitant]
  8. DIPHENHYDRAMINE [Concomitant]
  9. METOLAZONE [Concomitant]
  10. HYDRALAZINE [Concomitant]
  11. ENALAPRIL MALEATE [Suspect]
     Dosage: CODE NOT BROKEN
     Route: 048
     Dates: start: 20100729
  12. VITAMIN D [Concomitant]
  13. FISH OIL [Concomitant]
  14. VITAMIN K TAB [Concomitant]
  15. ONDANSETRON HYDROCHLORIDE [Concomitant]
  16. BLINDED ALISKIREN [Suspect]
     Dosage: NO TREATMENT
     Dates: start: 20100724, end: 20100728
  17. KLOR-CON [Concomitant]
  18. AMIODARONE HCL [Concomitant]
  19. CRESTOR [Concomitant]
  20. XYLOCAINE [Concomitant]
  21. SODIUM CHLORIDE [Concomitant]
  22. MUCOMYST [Concomitant]
  23. ZAROXOLYN [Concomitant]
  24. NOVOLIN R [Concomitant]
  25. ISOSORBIDE DINITRATE [Concomitant]
  26. CARVEDILOL [Concomitant]
  27. ASPIRIN [Concomitant]
  28. BLINDED ALISKIREN [Suspect]
     Dosage: CODE NOT BROKEN
     Route: 048
     Dates: start: 20100518, end: 20100723
  29. BLINDED NO TREATMENT RECEIVED [Suspect]
     Dosage: CODE NOT BROKEN
     Route: 048
     Dates: start: 20100518, end: 20100723
  30. BLINDED ALISKIREN [Suspect]
     Dosage: CODE NOT BROKEN
     Route: 048
     Dates: start: 20100729
  31. ALISKIREN [Suspect]
     Indication: CARDIAC FAILURE
  32. NIASPAN [Concomitant]
  33. DEMADEX [Concomitant]
  34. COUMADIN [Concomitant]
  35. WARFARIN SODIUM [Concomitant]
  36. HEPARIN [Concomitant]
  37. ACETAMINOPHEN [Concomitant]
  38. ENALAPRIL MALEATE [Suspect]
     Dosage: NO TREATMENT
     Dates: start: 20100724, end: 20100728
  39. CAPTOPRIL [Concomitant]
  40. LASIX [Concomitant]

REACTIONS (18)
  - ATRIAL FLUTTER [None]
  - CONDITION AGGRAVATED [None]
  - HYPOKALAEMIA [None]
  - CARDIAC FAILURE [None]
  - DISEASE PROGRESSION [None]
  - BLOOD CREATININE INCREASED [None]
  - BLOOD POTASSIUM INCREASED [None]
  - OEDEMA [None]
  - CORONARY ARTERY DISEASE [None]
  - BUNDLE BRANCH BLOCK LEFT [None]
  - CHEST PAIN [None]
  - EJECTION FRACTION DECREASED [None]
  - BLOOD UREA INCREASED [None]
  - ACUTE RESPIRATORY FAILURE [None]
  - CONCOMITANT DISEASE PROGRESSION [None]
  - BRONCHOSPASM [None]
  - ATRIAL FIBRILLATION [None]
  - DYSPNOEA [None]
